FAERS Safety Report 18302858 (Version 1)
Quarter: 2020Q3

REPORT INFORMATION
  Report Type: Spontaneous
  Country: US (occurrence: US)
  Receive Date: 20200923
  Receipt Date: 20200923
  Transmission Date: 20201103
  Serious: Yes (Other)
  Sender: FDA-Public Use
  Company Number: NVSC2020US258369

PATIENT
  Age: 57 Year
  Sex: Male

DRUGS (2)
  1. DECITABINE. [Suspect]
     Active Substance: DECITABINE
     Indication: MYELOPROLIFERATIVE NEOPLASM
     Dosage: 20 MG/M2 (DAYS 1?5), 1 CYCLE
     Route: 065
  2. VENETOCLAX. [Suspect]
     Active Substance: VENETOCLAX
     Indication: MYELOPROLIFERATIVE NEOPLASM
     Dosage: 1 CYCLE
     Route: 065

REACTIONS (3)
  - Myeloproliferative neoplasm [Unknown]
  - Product use in unapproved indication [Unknown]
  - Therapy partial responder [Unknown]
